FAERS Safety Report 7316354-2 (Version None)
Quarter: 2011Q1

REPORT INFORMATION
  Report Type: 
  Country: None (occurrence: None)
  Receive Date: 20110225
  Receipt Date: 20110216
  Transmission Date: 20110831
  Serious: Yes (Hospitalization)
  Sender: FDA-Public Use
  Company Number: US-ASTRAZENECA-2010SE48958

PATIENT
  Age: 54 Year
  Sex: Male

DRUGS (1)
  1. NEXIUM [Suspect]
     Route: 048

REACTIONS (6)
  - HOSPITALISATION [None]
  - DYSPEPSIA [None]
  - DRUG DOSE OMISSION [None]
  - HAEMATEMESIS [None]
  - INSOMNIA [None]
  - COUGH [None]
